FAERS Safety Report 18545535 (Version 1)
Quarter: 2020Q4

REPORT INFORMATION
  Report Type: Spontaneous
  Country: LT (occurrence: LT)
  Receive Date: 20201125
  Receipt Date: 20201125
  Transmission Date: 20210114
  Serious: Yes (Other)
  Sender: FDA-Public Use
  Company Number: LT-B.I. PHARMACEUTICALS,INC./RIDGEFIELD-2020-BI-062628

PATIENT
  Age: 57 Year
  Sex: Male

DRUGS (1)
  1. PRADAXA [Suspect]
     Active Substance: DABIGATRAN ETEXILATE MESYLATE
     Indication: ATRIAL FIBRILLATION
     Route: 048
     Dates: start: 20201116, end: 20201117

REACTIONS (1)
  - Multiple organ dysfunction syndrome [Recovering/Resolving]

NARRATIVE: CASE EVENT DATE: 20201117
